FAERS Safety Report 13942496 (Version 1)
Quarter: 2017Q3

REPORT INFORMATION
  Report Type: Spontaneous
  Country: US (occurrence: US)
  Receive Date: 20170906
  Receipt Date: 20170906
  Transmission Date: 20171127
  Serious: Yes (Hospitalization)
  Sender: FDA-Public Use
  Company Number: US-BAUSCH-BL-2017-026279

PATIENT
  Age: 9 Year
  Sex: Female

DRUGS (1)
  1. XENAZINE [Suspect]
     Active Substance: TETRABENAZINE
     Indication: CHOREA
     Dosage: 3 TABLETS (25MG PER TABLET) 3 TIMES A DAY
     Route: 048
     Dates: start: 201708

REACTIONS (2)
  - Hospitalisation [Unknown]
  - Prescribed overdose [Unknown]

NARRATIVE: CASE EVENT DATE: 201708
